FAERS Safety Report 9068566 (Version 1)
Quarter: 2013Q1

REPORT INFORMATION
  Report Type: Spontaneous
  Country: US (occurrence: None)
  Receive Date: 20130212
  Receipt Date: 20130212
  Transmission Date: 20140127
  Serious: Yes (Other)
  Sender: FDA-Public Use
  Company Number: None

PATIENT
  Age: 58 Year
  Sex: Male

DRUGS (1)
  1. RIBASPHERE RIBAPAK [Suspect]
     Indication: CHRONIC HEPATITIS C
     Dosage: 400 MG TAB/600 MG TAB  IN THE MORNING/IN THE   ORAL
     Route: 048
     Dates: start: 20121222, end: 20130206

REACTIONS (3)
  - Haemoglobin decreased [None]
  - Dizziness [None]
  - Rash pruritic [None]
